FAERS Safety Report 7137992-6 (Version None)
Quarter: 2010Q4

REPORT INFORMATION
  Report Type: 
  Country: None (occurrence: None)
  Receive Date: 20101103
  Receipt Date: 20100127
  Transmission Date: 20110411
  Serious: Yes (Other)
  Sender: FDA-Public Use
  Company Number: US-WYE-H13240110

PATIENT
  Age: 62 Year
  Sex: Female
  Weight: 61.29 kg

DRUGS (8)
  1. EFFEXOR XR [Suspect]
     Indication: FIBROMYALGIA
     Dosage: 75 MG 2X PER 1 DAY, ORAL
     Route: 048
     Dates: start: 20060101
  2. EFFEXOR XR [Suspect]
     Indication: NEUROPATHY PERIPHERAL
     Dosage: 75 MG 2X PER 1 DAY, ORAL
     Route: 048
     Dates: start: 20060101
  3. LYRICA [Concomitant]
  4. CELEBREX [Concomitant]
  5. PREMARIN [Concomitant]
  6. AMITRIPTYLINE HYDROCHLORIDE [Concomitant]
  7. PROCARDIA [Concomitant]
  8. NEXIUM [Concomitant]

REACTIONS (3)
  - DRUG WITHDRAWAL SYNDROME [None]
  - HYPOAESTHESIA ORAL [None]
  - PARAESTHESIA [None]
